FAERS Safety Report 16440284 (Version 1)
Quarter: 2019Q2

REPORT INFORMATION
  Report Type: Spontaneous
  Country: PT (occurrence: PT)
  Receive Date: 20190617
  Receipt Date: 20190617
  Transmission Date: 20190711
  Serious: Yes (Hospitalization)
  Sender: FDA-Public Use
  Company Number: PT-TAKEDA-2019TUS036910

PATIENT
  Age: 35 Year
  Sex: Female

DRUGS (1)
  1. ENTYVIO [Suspect]
     Active Substance: VEDOLIZUMAB
     Indication: CROHN^S DISEASE
     Dosage: 300 MILLIGRAM
     Route: 065
     Dates: start: 201809, end: 20190603

REACTIONS (7)
  - Rash macular [Unknown]
  - Skin swelling [Unknown]
  - Muscle spasms [Unknown]
  - Myalgia [Unknown]
  - Pain in extremity [Unknown]
  - Proctalgia [Not Recovered/Not Resolved]
  - Anal infection [Not Recovered/Not Resolved]

NARRATIVE: CASE EVENT DATE: 20190603
